FAERS Safety Report 4603211-5 (Version None)
Quarter: 2005Q2

REPORT INFORMATION
  Report Type: 
  Country: None (occurrence: None)
  Receive Date: 20050223
  Receipt Date: 20041216
  Transmission Date: 20051028
  Serious: Yes (Other)
  Sender: FDA-Public Use
  Company Number: PHEH2004US12726

PATIENT
  Age: 67 Year
  Sex: Female
  Weight: 87.5 kg

DRUGS (7)
  1. DIOVAN [Suspect]
     Indication: HYPERTENSION
     Dosage: 80 MG X 2, QD, ORAL
     Route: 048
  2. DIOVAN [Suspect]
     Indication: HYPERTENSION
     Dosage: 80 MG X2, QD, ORAL
     Route: 048
  3. NORVASC [Suspect]
  4. TOPROL-XL [Suspect]
     Indication: HYPERTENSION
     Dosage: 100 MG, BID, ORAL
     Route: 048
     Dates: start: 20000907, end: 20040917
  5. CLONIDINE [Suspect]
     Indication: HYPERTENSION
     Dosage: 0.1 MG, TID, ORAL
     Route: 048
     Dates: start: 20010606, end: 20040917
  6. MAXZIDE [Suspect]
     Indication: HYPERTENSION
     Dosage: 375/25 MG DAILY, ORAL
     Route: 048
     Dates: start: 20011004
  7. NAPROSYN [Concomitant]

REACTIONS (1)
  - BLOOD PRESSURE INADEQUATELY CONTROLLED [None]
